FAERS Safety Report 8843438 (Version 3)
Quarter: 2013Q3

REPORT INFORMATION
  Report Type: Spontaneous
  Country: US (occurrence: US)
  Receive Date: 20121016
  Receipt Date: 20130926
  Transmission Date: 20140515
  Serious: Yes (Death, Life-Threatening, Hospitalization, Disabling, Other)
  Sender: FDA-Public Use
  Company Number: US-MERCK-1210USA001873

PATIENT
  Sex: Male
  Weight: 95.24 kg

DRUGS (3)
  1. JANUVIA [Suspect]
     Indication: TYPE 2 DIABETES MELLITUS
     Dosage: 100 MG, QD
     Route: 048
     Dates: start: 20061121, end: 20070529
  2. BYETTA [Suspect]
     Dosage: 250 MICROGRAM, BID
     Dates: start: 20070827, end: 20101116
  3. BYETTA [Suspect]
     Dosage: 5 MICROGRAM, BID
     Dates: start: 20080317, end: 20090613

REACTIONS (14)
  - Pancreatic carcinoma [Fatal]
  - Cholecystectomy [Unknown]
  - Cardio-respiratory arrest [Fatal]
  - Metastases to liver [Fatal]
  - Pancreatic stent placement [Unknown]
  - Hypokalaemia [Unknown]
  - Pancreatic sphincterotomy [Unknown]
  - Renal failure acute [Unknown]
  - Dyspepsia [Unknown]
  - Gastrooesophageal reflux disease [Unknown]
  - Ulcer [Unknown]
  - Dyslipidaemia [Unknown]
  - Hypertension [Unknown]
  - Abdominal pain [Unknown]
